FAERS Safety Report 4776268-9 (Version None)
Quarter: 2005Q3

REPORT INFORMATION
  Report Type: 
  Country: None (occurrence: None)
  Receive Date: 20050922
  Receipt Date: 20050913
  Transmission Date: 20060218
  Serious: Yes (Hospitalization)
  Sender: FDA-Public Use
  Company Number: US-JNJFOC-20050903288

PATIENT
  Sex: Male

DRUGS (2)
  1. FENTANYL [Suspect]
     Route: 062
     Dates: start: 20050201
  2. FENTANYL [Suspect]
     Route: 062
     Dates: start: 20050201

REACTIONS (2)
  - PHARMACEUTICAL PRODUCT COMPLAINT [None]
  - SPINAL CORD COMPRESSION [None]
